FAERS Safety Report 25191133 (Version 1)
Quarter: 2025Q2

REPORT INFORMATION
  Report Type: Spontaneous
  Country: CN (occurrence: CN)
  Receive Date: 20250411
  Receipt Date: 20250411
  Transmission Date: 20250717
  Serious: Yes (Hospitalization)
  Sender: ELI LILLY AND CO
  Company Number: CN-ELI_LILLY_AND_COMPANY-CN202504001996

PATIENT
  Sex: Male

DRUGS (6)
  1. HUMULIN R [Suspect]
     Active Substance: INSULIN HUMAN
     Indication: Diabetes mellitus
     Dosage: 11 U, EACH MORNING
     Route: 058
     Dates: start: 2004
  2. HUMULIN R [Suspect]
     Active Substance: INSULIN HUMAN
     Dosage: 10 U, NOON
     Route: 058
     Dates: start: 2004
  3. HUMULIN R [Suspect]
     Active Substance: INSULIN HUMAN
     Dosage: 8 U, EACH EVENING
     Route: 058
     Dates: start: 2004
  4. HUMALOG [Suspect]
     Active Substance: INSULIN LISPRO
     Indication: Diabetes mellitus
     Dosage: 1 U, EACH MORNING
     Route: 058
     Dates: start: 202401
  5. HUMALOG [Suspect]
     Active Substance: INSULIN LISPRO
     Dosage: 10 U, NOON
     Route: 058
     Dates: start: 202401
  6. HUMALOG [Suspect]
     Active Substance: INSULIN LISPRO
     Dosage: 8 U, EACH EVENING
     Route: 058
     Dates: start: 202401

REACTIONS (3)
  - Blood glucose increased [Recovering/Resolving]
  - Blood glucose increased [Unknown]
  - Therapeutic response decreased [Recovered/Resolved]

NARRATIVE: CASE EVENT DATE: 20240101
